FAERS Safety Report 4667044-6 (Version None)
Quarter: 2005Q2

REPORT INFORMATION
  Report Type: 
  Country: None (occurrence: None)
  Receive Date: 20050520
  Receipt Date: 20041110
  Transmission Date: 20051028
  Serious: Yes (Other)
  Sender: FDA-Public Use
  Company Number: PHEH2004US12122

PATIENT
  Age: 74 Year
  Sex: Female

DRUGS (7)
  1. AREDIA [Suspect]
     Indication: METASTASES TO BONE
     Dates: start: 20050101
  2. AREDIA [Suspect]
     Dosage: 90 MG Q28 DAYS
     Dates: start: 20040223, end: 20041004
  3. ZOMETA [Suspect]
     Indication: METASTASES TO BONE
     Dosage: 4 MG Q28 DAYS
     Dates: start: 20020325, end: 20030906
  4. FEMARA [Concomitant]
     Dates: start: 20020201, end: 20041001
  5. PERCOCET [Concomitant]
  6. PROZAC [Concomitant]
  7. AROMASIN [Concomitant]
     Dosage: UNK, UNK
     Dates: start: 20041004

REACTIONS (9)
  - BONE DISORDER [None]
  - IMPAIRED HEALING [None]
  - ORAL SURGERY [None]
  - OSTEONECROSIS [None]
  - PAIN IN JAW [None]
  - SOFT TISSUE INFECTION [None]
  - SWELLING [None]
  - TOOTH EXTRACTION [None]
  - WOUND DEBRIDEMENT [None]
